FAERS Safety Report 8505123-3 (Version None)
Quarter: 2012Q3

REPORT INFORMATION
  Report Type: 
  Country: None (occurrence: None)
  Receive Date: 20120712
  Receipt Date: 20120711
  Transmission Date: 20120928
  Serious: Yes (Hospitalization)
  Sender: FDA-Public Use
  Company Number: PHHO2010FR04829

PATIENT
  Sex: Female
  Weight: 78 kg

DRUGS (3)
  1. TRASTUZUMAB [Concomitant]
     Indication: BREAST CANCER
  2. PACLITAXEL [Concomitant]
     Indication: BREAST CANCER
  3. EVEROLIMUS [Suspect]
     Indication: BREAST CANCER
     Dosage: 1.5 MG, UNK
     Route: 048
     Dates: start: 20090824, end: 20091106

REACTIONS (2)
  - PNEUMONITIS [None]
  - PYREXIA [None]
